FAERS Safety Report 5542378-1 (Version None)
Quarter: 2007Q4

REPORT INFORMATION
  Report Type: 
  Country: None (occurrence: None)
  Receive Date: 20071210
  Receipt Date: 20061221
  Transmission Date: 20080405
  Serious: No
  Sender: FDA-Public Use
  Company Number: US-AMGEN-KDL202639

PATIENT
  Sex: Female
  Weight: 64 kg

DRUGS (5)
  1. ENBREL [Suspect]
     Indication: RHEUMATOID ARTHRITIS
     Route: 058
     Dates: start: 20040423
  2. SALSALATE [Concomitant]
     Dates: start: 19950404
  3. AMBIEN [Concomitant]
     Dates: start: 19990602
  4. CALCIUM [Concomitant]
     Dates: start: 19880201
  5. VITAMIN CAP [Concomitant]
     Dates: start: 20010320

REACTIONS (1)
  - PHARYNGOLARYNGEAL PAIN [None]
